FAERS Safety Report 4417762-X (Version None)
Quarter: 2004Q3

REPORT INFORMATION
  Report Type: 
  Country: None (occurrence: None)
  Receive Date: 20040803
  Receipt Date: 20040719
  Transmission Date: 20050211
  Serious: Yes (Death)
  Sender: FDA-Public Use
  Company Number: 04P-056-0263792-00

PATIENT
  Age: 36 Year
  Sex: Male

DRUGS (5)
  1. DEPAKOTE [Suspect]
     Indication: SCHIZOPHRENIA
     Dosage: 500 MG, 3 IN 1 D, PER ORAL; SEE IMAGE
     Route: 048
     Dates: start: 20040518, end: 20040518
  2. DEPAKOTE [Suspect]
     Indication: SCHIZOPHRENIA
     Dosage: 500 MG, 3 IN 1 D, PER ORAL; SEE IMAGE
     Route: 048
     Dates: start: 20040519, end: 20040520
  3. CYAMEMAZINE (CYAMEMAZINE) [Suspect]
     Indication: AGITATION
     Dosage: 300 MG, 1 IN 1 D, PER ORAL
     Route: 048
     Dates: start: 20040513, end: 20040520
  4. HALOPERIDOL DECANOATE [Concomitant]
  5. ANETHOLE TRITHIONE [Concomitant]

REACTIONS (13)
  - BRAIN HERNIATION [None]
  - BRAIN OEDEMA [None]
  - CEREBROVASCULAR DISORDER [None]
  - COMA [None]
  - CONFUSIONAL STATE [None]
  - DEPRESSED LEVEL OF CONSCIOUSNESS [None]
  - DRUG INTERACTION [None]
  - DRUG SCREEN POSITIVE [None]
  - HYPERTHERMIA [None]
  - PNEUMONIA ASPIRATION [None]
  - RESPIRATORY DISTRESS [None]
  - SOMNOLENCE [None]
  - STATUS EPILEPTICUS [None]
